FAERS Safety Report 4950408-0 (Version None)
Quarter: 2006Q1

REPORT INFORMATION
  Report Type: 
  Country: None (occurrence: None)
  Receive Date: 20060315
  Receipt Date: 20060220
  Transmission Date: 20060701
  Serious: Yes (Other)
  Sender: FDA-Public Use
  Company Number: AR200603001407

PATIENT
  Age: 60 Year
  Sex: Male

DRUGS (2)
  1. CIALIS [Suspect]
     Indication: ERECTILE DYSFUNCTION
     Dosage: AS NEEDED, ORAL
     Route: 048
  2. ORAL ANTIDIABETICS [Concomitant]

REACTIONS (1)
  - PAPILLITIS [None]
